FAERS Safety Report 19970085 (Version 1)
Quarter: 2021Q4

REPORT INFORMATION
  Report Type: Spontaneous
  Country: CN (occurrence: CN)
  Receive Date: 20211019
  Receipt Date: 20211019
  Transmission Date: 20220303
  Serious: Yes (Other)
  Sender: FDA-Public Use
  Company Number: CN-BAYER-2021A229161

PATIENT
  Age: 68 Year
  Sex: Female
  Weight: 40 kg

DRUGS (1)
  1. AVELOX [Suspect]
     Active Substance: MOXIFLOXACIN HYDROCHLORIDE
     Indication: Abdominal infection
     Dosage: 0.4 G, QD
     Route: 041
     Dates: start: 20210923, end: 20210927

REACTIONS (4)
  - Diplegia [Recovering/Resolving]
  - Muscular weakness [Recovering/Resolving]
  - Hypoaesthesia oral [Recovering/Resolving]
  - Altered state of consciousness [Recovering/Resolving]

NARRATIVE: CASE EVENT DATE: 20210927
